FAERS Safety Report 12492526 (Version 1)
Quarter: 2016Q2

REPORT INFORMATION
  Report Type: Spontaneous
  Country: FR (occurrence: FR)
  Receive Date: 20160623
  Receipt Date: 20160623
  Transmission Date: 20160815
  Serious: Yes (Other)
  Sender: FDA-Public Use
  Company Number: FR-SA-2016SA113605

PATIENT
  Sex: Female

DRUGS (1)
  1. AUBAGIO [Suspect]
     Active Substance: TERIFLUNOMIDE
     Route: 065
     Dates: start: 20160520

REACTIONS (17)
  - Malaise [Unknown]
  - Arthralgia [Unknown]
  - Peripheral swelling [Unknown]
  - Pain [Unknown]
  - Balance disorder [Unknown]
  - Back pain [Unknown]
  - Hypoaesthesia [Unknown]
  - Feeling hot [Unknown]
  - Toothache [Unknown]
  - Hypersensitivity [Unknown]
  - Pruritus [Unknown]
  - Alopecia [Unknown]
  - Tremor [Unknown]
  - Pain [Unknown]
  - Insomnia [Unknown]
  - Feeling abnormal [Unknown]
  - Burning sensation [Unknown]

NARRATIVE: CASE EVENT DATE: 20160520
